FAERS Safety Report 15504391 (Version 3)
Quarter: 2018Q4

REPORT INFORMATION
  Report Type: Spontaneous
  Country: JP (occurrence: JP)
  Receive Date: 20181016
  Receipt Date: 20181226
  Transmission Date: 20190205
  Serious: Yes (Death, Life-Threatening, Other)
  Sender: FDA-Public Use
  Company Number: JP-ROCHE-2168546

PATIENT
  Age: 58 Year
  Sex: Female
  Weight: 79 kg

DRUGS (3)
  1. PACLITAXEL. [Suspect]
     Active Substance: PACLITAXEL
     Indication: BREAST CANCER
     Dosage: DOSAGE IS UNCERTAIN.
     Route: 041
     Dates: start: 20180511, end: 20180706
  2. AVASTIN [Suspect]
     Active Substance: BEVACIZUMAB
     Indication: BREAST CANCER
     Route: 041
     Dates: start: 20180511, end: 20180608
  3. NAVELBINE [Suspect]
     Active Substance: VINORELBINE TARTRATE
     Indication: BREAST CANCER
     Dosage: 2 DAYS ADMINISTRATION FOLLOWED BY 1 DAY REST
     Route: 042
     Dates: start: 20180720, end: 20180810

REACTIONS (7)
  - Neutrophil count decreased [Unknown]
  - Generalised oedema [Unknown]
  - Device related infection [Recovering/Resolving]
  - Purulence [Unknown]
  - Wound dehiscence [Not Recovered/Not Resolved]
  - Post procedural fistula [Unknown]
  - Sepsis [Fatal]

NARRATIVE: CASE EVENT DATE: 20180608
